FAERS Safety Report 18534037 (Version 1)
Quarter: 2020Q4

REPORT INFORMATION
  Report Type: Spontaneous
  Country: CA (occurrence: CA)
  Receive Date: 20201122
  Receipt Date: 20201122
  Transmission Date: 20210114
  Serious: Yes (Hospitalization, Disabling)
  Sender: FDA-Public Use
  Company Number: None

PATIENT
  Age: 67 Year
  Sex: Male
  Weight: 63 kg

DRUGS (5)
  1. VITAMIN D [Concomitant]
     Active Substance: VITAMIN D NOS
  2. CIPROFLOXACIN 300 MG. [Suspect]
     Active Substance: CIPROFLOXACIN
     Indication: URINARY TRACT INFECTION
     Dosage: ?          QUANTITY:21 TABLET(S);?
     Route: 048
     Dates: start: 20200929, end: 20201006
  3. ZOPICLONE [Concomitant]
     Active Substance: ZOPICLONE
  4. PROGRESSIVE MULTIVITAMINS [Concomitant]
  5. ALLUPURINOL [Concomitant]

REACTIONS (6)
  - Gait disturbance [None]
  - Paraesthesia [None]
  - Visual impairment [None]
  - Fatigue [None]
  - Tendon pain [None]
  - Myalgia [None]

NARRATIVE: CASE EVENT DATE: 20201008
